FAERS Safety Report 8379613-0 (Version None)
Quarter: 2012Q2

REPORT INFORMATION
  Report Type: 
  Country: None (occurrence: None)
  Receive Date: 20120523
  Receipt Date: 20120510
  Transmission Date: 20120825
  Serious: Yes (Hospitalization)
  Sender: FDA-Public Use
  Company Number: PHHY2012ES041799

PATIENT
  Age: 78 Year
  Sex: Female

DRUGS (5)
  1. SINTROM [Concomitant]
     Indication: ATRIAL FIBRILLATION
     Dosage: UNK
     Dates: end: 20120113
  2. MITEN PLUS [Suspect]
     Indication: HYPERTENSION
     Dosage: 1 DF, QD (160 MG VALS AND 25 MG HYDRO)
     Route: 048
     Dates: start: 20090101, end: 20120113
  3. METFORMIN HCL [Concomitant]
     Indication: DIABETES MELLITUS
     Dosage: 850 MG, QD
     Route: 048
  4. BLOKIUM [Suspect]
     Dosage: 50 MG, QD
     Route: 048
     Dates: start: 20080101, end: 20120113
  5. FLECAINIDE ACETATE [Concomitant]
     Indication: TACHYCARDIA
     Dosage: UNK
     Route: 048
     Dates: end: 20120113

REACTIONS (4)
  - ATRIAL FIBRILLATION [None]
  - SYNCOPE [None]
  - ARRHYTHMIA [None]
  - HYPOTENSION [None]
